FAERS Safety Report 8107104-0 (Version None)
Quarter: 2011Q4

REPORT INFORMATION
  Report Type: 
  Country: None (occurrence: None)
  Receive Date: 20111227
  Receipt Date: 20111003
  Transmission Date: 20120403
  Serious: No
  Sender: FDA-Public Use
  Company Number: PHEH2011US02995

PATIENT
  Age: 57 Year
  Sex: Male

DRUGS (1)
  1. GILENYA [Suspect]
     Indication: MULTIPLE SCLEROSIS
     Dosage: 0.5 MG, QD, ORAL
     Route: 048
     Dates: start: 20110824, end: 20110907

REACTIONS (8)
  - NAUSEA [None]
  - DECREASED APPETITE [None]
  - VOMITING [None]
  - ABDOMINAL PAIN UPPER [None]
  - PAIN [None]
  - HEPATIC ENZYME INCREASED [None]
  - BACK PAIN [None]
  - FATIGUE [None]
